FAERS Safety Report 5677349-8 (Version None)
Quarter: 2008Q1

REPORT INFORMATION
  Report Type: 
  Country: None (occurrence: None)
  Receive Date: 20080324
  Receipt Date: 20080312
  Transmission Date: 20080703
  Serious: Yes (Other)
  Sender: FDA-Public Use
  Company Number: ZA-PFIZER INC-2008024165

PATIENT
  Age: 45 Year
  Sex: Male

DRUGS (1)
  1. LYRICA [Suspect]
     Indication: PARAESTHESIA
     Route: 048
     Dates: start: 20080301, end: 20080301

REACTIONS (3)
  - EYE SWELLING [None]
  - HYPERSENSITIVITY [None]
  - LIP SWELLING [None]
